FAERS Safety Report 18583056 (Version 2)
Quarter: 2020Q4

REPORT INFORMATION
  Report Type: Spontaneous
  Country: CO (occurrence: CO)
  Receive Date: 20201206
  Receipt Date: 20201230
  Transmission Date: 20210114
  Serious: Yes (Hospitalization, Other)
  Sender: FDA-Public Use
  Company Number: CO-AMGEN-COLSP2020193943

PATIENT
  Age: 57 Year
  Sex: Female
  Weight: 42 kg

DRUGS (10)
  1. FLUOROURACIL. [Concomitant]
     Active Substance: FLUOROURACIL
     Indication: ADENOCARCINOMA OF COLON
     Dosage: 3240 MILLIGRAM
     Route: 042
     Dates: start: 2010
  2. DEXAMETHASONE PHOSPHATE [Concomitant]
     Active Substance: DEXAMETHASONE PHOSPHATE
     Indication: ADENOCARCINOMA OF COLON
     Dosage: 16 MILLIGRAM
     Route: 042
     Dates: start: 2010
  3. HYDROMORPHONE HYDROCHLORIDE. [Concomitant]
     Active Substance: HYDROMORPHONE HYDROCHLORIDE
     Indication: PAIN
     Dosage: 2.5 MILLIGRAM, Q8H
     Route: 048
  4. CALCIUM FOLINATE [Concomitant]
     Active Substance: LEUCOVORIN CALCIUM
     Indication: ADENOCARCINOMA OF COLON
     Dosage: 540 MILLIGRAM
  5. HYOSCINE BUTYLBROMIDE [Concomitant]
     Active Substance: BUTYLSCOPOLAMINE BROMIDE
     Indication: ABDOMINAL PAIN
     Dosage: 10 MILLIGRAM, Q8H
     Route: 048
     Dates: start: 20201123
  6. PREGABALIN. [Concomitant]
     Active Substance: PREGABALIN
     Indication: PAIN
     Dosage: 20 MILLIGRAM PER MILLILITRE, QD
     Route: 048
     Dates: start: 20201104
  7. PREGABALIN. [Concomitant]
     Active Substance: PREGABALIN
     Indication: PALLIATIVE CARE
  8. MVASI [Suspect]
     Active Substance: BEVACIZUMAB-AWWB
     Indication: ADENOCARCINOMA OF COLON
     Dosage: 208 MILLIGRAM
     Route: 042
     Dates: start: 20200717
  9. HYDROMORPHONE HYDROCHLORIDE. [Concomitant]
     Active Substance: HYDROMORPHONE HYDROCHLORIDE
     Indication: PALLIATIVE CARE
  10. ONDANSETRON [Concomitant]
     Active Substance: ONDANSETRON
     Indication: ADENOCARCINOMA OF COLON
     Dosage: 16 MILLIGRAM
     Route: 042
     Dates: start: 2010

REACTIONS (3)
  - Osteolysis [Not Recovered/Not Resolved]
  - Adenocarcinoma of colon [Not Recovered/Not Resolved]
  - Retroperitoneal abscess [Not Recovered/Not Resolved]

NARRATIVE: CASE EVENT DATE: 2020
